FAERS Safety Report 6073136-X (Version None)
Quarter: 2009Q1

REPORT INFORMATION
  Report Type: 
  Country: None (occurrence: None)
  Receive Date: 20090211
  Receipt Date: 20090130
  Transmission Date: 20090719
  Serious: Yes (Life-Threatening, Disabling)
  Sender: FDA-Public Use
  Company Number: US-WYE-H08008809

PATIENT
  Sex: Female

DRUGS (6)
  1. EFFEXOR XR [Suspect]
     Indication: DEPRESSION
     Route: 048
     Dates: start: 19980101
  2. TRAZODONE HCL [Concomitant]
     Dosage: UNKNOWN
  3. PLASMA [Concomitant]
     Dosage: UNKNOWN
  4. VALTREX [Concomitant]
     Indication: HERPES SIMPLEX
     Dosage: UNKNOWN
     Dates: start: 19950101
  5. IMITREX ^GLAXO-WELLCOME^ [Interacting]
     Indication: MIGRAINE
     Dosage: 50 MG AS REQUIRED
     Route: 048
     Dates: start: 19920101
  6. EFFEXOR [Concomitant]
     Dosage: UNKNOWN

REACTIONS (8)
  - BALANCE DISORDER [None]
  - BEDRIDDEN [None]
  - DIZZINESS [None]
  - DRUG INTERACTION [None]
  - FALL [None]
  - GAIT DISTURBANCE [None]
  - NAUSEA [None]
  - VERTIGO [None]
